FAERS Safety Report 10222321 (Version 2)
Quarter: 2014Q2

REPORT INFORMATION
  Report Type: Spontaneous
  Country: BR (occurrence: BR)
  Receive Date: 20140606
  Receipt Date: 20140613
  Transmission Date: 20141212
  Serious: Yes (Death)
  Sender: FDA-Public Use
  Company Number: BR-PFIZER INC-2014152433

PATIENT
  Age: 83 Year
  Sex: Female

DRUGS (2)
  1. OLMETEC HCT [Suspect]
     Indication: BLOOD PRESSURE INCREASED
     Dosage: [OLMESARTAN MEDOXIMIL 20 MG]/ [HYDROCHLOROTHIAZIDE 12.5 MG], UNK
     Route: 048
     Dates: start: 20110217
  2. NORVASC [Suspect]
     Indication: BLOOD PRESSURE INCREASED
     Dosage: 5 MG, UNK
     Route: 048
     Dates: start: 20110217

REACTIONS (2)
  - Pneumonia [Fatal]
  - Respiratory disorder [Fatal]
